FAERS Safety Report 6137807-9 (Version None)
Quarter: 2009Q1

REPORT INFORMATION
  Report Type: 
  Country: None (occurrence: None)
  Receive Date: 20090331
  Receipt Date: 20090303
  Transmission Date: 20090719
  Serious: No
  Sender: FDA-Public Use
  Company Number: US-BAYER-200914557NA

PATIENT
  Age: 36 Year
  Sex: Female

DRUGS (2)
  1. YAZ [Suspect]
     Indication: PREMATURE MENOPAUSE
     Route: 048
     Dates: end: 20090201
  2. YASMIN [Suspect]
     Indication: PREMATURE MENOPAUSE
     Dosage: TOTAL DAILY DOSE: 1 DF
     Route: 048
     Dates: start: 20090201

REACTIONS (4)
  - DEPRESSED MOOD [None]
  - INFLUENZA LIKE ILLNESS [None]
  - NAUSEA [None]
  - VOMITING [None]
